FAERS Safety Report 23182725 (Version 1)
Quarter: 2023Q4

REPORT INFORMATION
  Report Type: Spontaneous
  Country: US (occurrence: None)
  Receive Date: 20231114
  Receipt Date: 20231114
  Transmission Date: 20240110
  Serious: Yes (Hospitalization)
  Sender: FDA-Public Use
  Company Number: None

PATIENT
  Age: 32 Year
  Sex: Male
  Weight: 81.2 kg

DRUGS (1)
  1. TIROFIBAN [Suspect]
     Active Substance: TIROFIBAN
     Indication: Thrombosis
     Dosage: OTHER FREQUENCY : BOLUS/ONCE;?
     Route: 040

REACTIONS (1)
  - Thrombocytopenia [None]

NARRATIVE: CASE EVENT DATE: 20231005
